FAERS Safety Report 20750321 (Version 8)
Quarter: 2023Q1

REPORT INFORMATION
  Report Type: Spontaneous
  Country: US (occurrence: US)
  Receive Date: 20220426
  Receipt Date: 20230329
  Transmission Date: 20230417
  Serious: No
  Sender: FDA-Public Use
  Company Number: US-PFIZER INC-2020416441

PATIENT
  Age: 69 Year
  Sex: Female
  Weight: 64.41 kg

DRUGS (2)
  1. PREMPRO [Suspect]
     Active Substance: ESTROGENS, CONJUGATED\MEDROXYPROGESTERONE ACETATE
     Indication: Hormone replacement therapy
     Dosage: 1 DF, 1X/DAY
     Route: 048
     Dates: start: 2002
  2. ALLEGRA [Concomitant]
     Active Substance: FEXOFENADINE HYDROCHLORIDE
     Indication: Seasonal allergy
     Dosage: UNK

REACTIONS (18)
  - COVID-19 [Unknown]
  - Cough [Unknown]
  - Dysphonia [Unknown]
  - Sinusitis [Unknown]
  - Balance disorder [Unknown]
  - Anxiety [Unknown]
  - Fatigue [Unknown]
  - Feeling jittery [Unknown]
  - Insomnia [Unknown]
  - Illness [Unknown]
  - Memory impairment [Unknown]
  - Nervousness [Unknown]
  - Malaise [Unknown]
  - Stress [Unknown]
  - Depression [Unknown]
  - Off label use [Unknown]
  - Intentional product misuse [Unknown]
  - Intentional dose omission [Unknown]
